FAERS Safety Report 13727383 (Version 2)
Quarter: 2017Q4

REPORT INFORMATION
  Report Type: Spontaneous
  Country: US (occurrence: US)
  Receive Date: 20170706
  Receipt Date: 20171103
  Transmission Date: 20180320
  Serious: Yes (Other)
  Sender: FDA-Public Use
  Company Number: US-AMGEN-USASP2017101607

PATIENT
  Age: 42 Year
  Sex: Female

DRUGS (4)
  1. EPOGEN [Suspect]
     Active Substance: ERYTHROPOIETIN
     Indication: END STAGE RENAL DISEASE
  2. DURAGESIC [Concomitant]
     Active Substance: FENTANYL
     Dosage: UNK
  3. LYRICA [Concomitant]
     Active Substance: PREGABALIN
     Dosage: UNK
  4. EPOGEN [Suspect]
     Active Substance: ERYTHROPOIETIN
     Indication: CHRONIC KIDNEY DISEASE
     Dosage: UNK
     Route: 058
     Dates: start: 2015

REACTIONS (2)
  - Aplasia pure red cell [Unknown]
  - General physical health deterioration [Not Recovered/Not Resolved]
